FAERS Safety Report 4793444-X (Version None)
Quarter: 2005Q4

REPORT INFORMATION
  Report Type: 
  Country: None (occurrence: None)
  Receive Date: 20051006
  Receipt Date: 20050921
  Transmission Date: 20060501
  Serious: Yes (Hospitalization)
  Sender: FDA-Public Use
  Company Number: 216558

PATIENT
  Age: 64 Year
  Sex: Female
  Weight: 59.4 kg

DRUGS (6)
  1. AVASTIN [Suspect]
     Indication: BREAST CANCER METASTATIC
     Dosage: 15 MG/KG, Q3W, INTRAVENOUS
     Route: 042
     Dates: start: 20050517
  2. TAXOTERE [Suspect]
     Indication: BREAST CANCER METASTATIC
     Dosage: 75 MG/M2, Q3W, INTRAVENOUS; SEE IMAGE
     Route: 042
     Dates: start: 20050426
  3. TAXOTERE [Suspect]
     Indication: BREAST CANCER METASTATIC
     Dosage: 75 MG/M2, Q3W, INTRAVENOUS; SEE IMAGE
     Route: 042
     Dates: start: 20050517
  4. LEVOXYL [Concomitant]
  5. ALBUTEROL INHALER (ALBUTEROL SULFATE, ALBUTEROL) [Concomitant]
  6. ZETIA [Concomitant]

REACTIONS (6)
  - DEHYDRATION [None]
  - ELECTROLYTE IMBALANCE [None]
  - NAUSEA [None]
  - OESOPHAGITIS [None]
  - SUPRAVENTRICULAR TACHYCARDIA [None]
  - VOMITING [None]
